FAERS Safety Report 18414923 (Version 1)
Quarter: 2020Q4

REPORT INFORMATION
  Report Type: Spontaneous
  Country: US (occurrence: US)
  Receive Date: 20201022
  Receipt Date: 20201022
  Transmission Date: 20210114
  Serious: Yes (Death)
  Sender: FDA-Public Use
  Company Number: None

PATIENT
  Age: 87 Year
  Sex: Male

DRUGS (4)
  1. METOPROLOL 25MG [Concomitant]
     Active Substance: METOPROLOL
     Dates: start: 20200120, end: 20201022
  2. CLOPIDOGREL [Concomitant]
     Active Substance: CLOPIDOGREL BISULFATE
     Dates: start: 20200120, end: 20201022
  3. CAPECITABINE. [Suspect]
     Active Substance: CAPECITABINE
     Indication: COLON CANCER
     Route: 048
     Dates: start: 20200730
  4. LISINOPRIL/HCTZ 10-12.5MG [Concomitant]
     Dates: start: 20200120, end: 20201022

REACTIONS (1)
  - Death [None]
